FAERS Safety Report 4806851-3 (Version None)
Quarter: 2005Q4

REPORT INFORMATION
  Report Type: 
  Country: None (occurrence: None)
  Receive Date: 20051019
  Receipt Date: 20050928
  Transmission Date: 20060501
  Serious: Yes (Death)
  Sender: FDA-Public Use
  Company Number: EWC050946077

PATIENT
  Age: 50 Year
  Sex: Female

DRUGS (3)
  1. ZYPREXA [Suspect]
     Dosage: 20 MG/1 DAY
     Route: 048
     Dates: start: 20050801
  2. REXETIN          (PAROXETINE) [Concomitant]
  3. RISPOLEPT                                         (RISPERIDONE) [Concomitant]

REACTIONS (5)
  - ANXIETY [None]
  - COMPLETED SUICIDE [None]
  - CONDITION AGGRAVATED [None]
  - MENTAL IMPAIRMENT [None]
  - PSYCHOTIC DISORDER [None]
